FAERS Safety Report 18123151 (Version 2)
Quarter: 2020Q4

REPORT INFORMATION
  Report Type: Spontaneous
  Country: NL (occurrence: NL)
  Receive Date: 20200807
  Receipt Date: 20201106
  Transmission Date: 20210113
  Serious: No
  Sender: FDA-Public Use
  Company Number: NVSC2020NL219203

PATIENT
  Age: 65 Year
  Sex: Female

DRUGS (1)
  1. METHOTREXATE. [Suspect]
     Active Substance: METHOTREXATE
     Indication: RHEUMATIC DISORDER
     Dosage: 20 MG, QW (STRENGTH: 20MG/WWSP, 0.4ML,)
     Route: 051
     Dates: start: 20200518, end: 20200701

REACTIONS (3)
  - Injection site pain [Unknown]
  - Syringe issue [Unknown]
  - Needle issue [Unknown]
